FAERS Safety Report 5237931-9 (Version None)
Quarter: 2007Q1

REPORT INFORMATION
  Report Type: 
  Country: None (occurrence: None)
  Receive Date: 20070209
  Receipt Date: 20060825
  Transmission Date: 20070707
  Serious: Yes (Death, Other)
  Sender: FDA-Public Use
  Company Number: 2006-06-0534

PATIENT
  Age: 90 Year
  Sex: Female

DRUGS (1)
  1. RINDERON (BETAMETHASONE) (BETAMETHASONE) [Suspect]
     Indication: RHEUMATOID ARTHRITIS
     Dosage: 1 MG; QD; PO
     Route: 048
     Dates: start: 20000101

REACTIONS (13)
  - BONE DISORDER [None]
  - BRAIN NEOPLASM [None]
  - CATARACT [None]
  - DEPRESSED LEVEL OF CONSCIOUSNESS [None]
  - EYE MOVEMENT DISORDER [None]
  - EYELID PTOSIS [None]
  - IMMUNE SYSTEM DISORDER [None]
  - OPTIC ATROPHY [None]
  - ORBITAL APEX SYNDROME [None]
  - PUPILLARY REFLEX IMPAIRED [None]
  - REFUSAL OF TREATMENT BY PATIENT [None]
  - REFUSAL OF TREATMENT BY RELATIVE [None]
  - SINUSITIS ASPERGILLUS [None]
